FAERS Safety Report 19962809 (Version 2)
Quarter: 2021Q4

REPORT INFORMATION
  Report Type: Spontaneous
  Country: US (occurrence: US)
  Receive Date: 20211018
  Receipt Date: 20211025
  Transmission Date: 20220303
  Serious: Yes (Other)
  Sender: FDA-Public Use
  Company Number: US-PFIZER INC-202101324324

PATIENT
  Age: 61 Year
  Sex: Male

DRUGS (7)
  1. BUPRENORPHINE [Suspect]
     Active Substance: BUPRENORPHINE
     Indication: Drug use disorder
     Dosage: UNK (2 MG/0.5 MG)
  2. FENTANYL [Concomitant]
     Active Substance: FENTANYL
     Indication: Drug use disorder
     Dosage: UNK
     Route: 042
  3. HEROIN [Concomitant]
     Active Substance: DIAMORPHINE
     Indication: Drug use disorder
     Dosage: UNK
     Route: 042
  4. OXAZEPAM [Concomitant]
     Active Substance: OXAZEPAM
     Dosage: 15 MG (ONE DOSE)
  5. IBUPROFEN [Concomitant]
     Active Substance: IBUPROFEN
     Dosage: 600 MG
  6. CLONIDINE [Concomitant]
     Active Substance: CLONIDINE
     Dosage: 0.1 MG
  7. BUPRENORPHINE\NALOXONE [Concomitant]
     Active Substance: BUPRENORPHINE\NALOXONE
     Dosage: UNK

REACTIONS (1)
  - Drug withdrawal syndrome [Unknown]
